FAERS Safety Report 5848260-4 (Version None)
Quarter: 2008Q3

REPORT INFORMATION
  Report Type: 
  Country: None (occurrence: None)
  Receive Date: 20080818
  Receipt Date: 20080811
  Transmission Date: 20090109
  Serious: Yes (Hospitalization)
  Sender: FDA-Public Use
  Company Number: US-JNJFOC-20080703879

PATIENT
  Sex: Male
  Weight: 19.1 kg

DRUGS (2)
  1. TYLENOL (CAPLET) [Suspect]
     Indication: COUGH
     Route: 048
  2. CHILDRENS TYLENOL PLUS MULTI-SYMPTOM COLD GRAPE [Suspect]
     Indication: COUGH

REACTIONS (5)
  - DYSPNOEA [None]
  - MEDICATION TAMPERING [None]
  - PYREXIA [None]
  - WHEEZING [None]
  - WRONG DRUG ADMINISTERED [None]
